FAERS Safety Report 24431736 (Version 11)
Quarter: 2024Q4

REPORT INFORMATION
  Report Type: Spontaneous
  Country: DE (occurrence: DE)
  Receive Date: 20241014
  Receipt Date: 20241230
  Transmission Date: 20250115
  Serious: Yes (Life-Threatening, Other)
  Sender: AUROBINDO
  Company Number: DE-SA-2024SA281713

PATIENT
  Age: 16 Year
  Sex: Male
  Weight: 74.95 kg

DRUGS (64)
  1. CARBOPLATIN [Suspect]
     Active Substance: CARBOPLATIN
     Indication: Non-Hodgkin^s lymphoma
     Dosage: 1180 MILLIGRAM
     Route: 042
     Dates: start: 20240802
  2. CARBOPLATIN [Suspect]
     Active Substance: CARBOPLATIN
     Dosage: 1120 MILLIGRAM 1TOTAL
     Route: 042
     Dates: start: 20240802
  3. CARBOPLATIN [Suspect]
     Active Substance: CARBOPLATIN
     Dosage: 1180 MILLIGRAM
     Route: 042
     Dates: start: 20240903
  4. HYDROCORTISONE [Suspect]
     Active Substance: HYDROCORTISONE
     Indication: Non-Hodgkin^s lymphoma
     Dosage: 10 MILLIGRAM
     Route: 037
     Dates: start: 20240902
  5. HYDROCORTISONE [Suspect]
     Active Substance: HYDROCORTISONE
     Dosage: 10 MILLIGRAM
     Route: 065
     Dates: start: 20240902
  6. RITUXIMAB [Suspect]
     Active Substance: RITUXIMAB
     Indication: Non-Hodgkin^s lymphoma
     Dosage: 700 MILLIGRAM 1TOTAL
     Route: 042
     Dates: start: 20240902
  7. RITUXIMAB [Suspect]
     Active Substance: RITUXIMAB
     Dosage: UNK
     Route: 042
     Dates: start: 20240902
  8. RITUXIMAB [Suspect]
     Active Substance: RITUXIMAB
     Dosage: UNK
     Route: 042
     Dates: start: 20240902
  9. ETOPOSIDE [Suspect]
     Active Substance: ETOPOSIDE
     Indication: Non-Hodgkin^s lymphoma
     Dosage: 186 MILLIGRAM
     Route: 042
     Dates: start: 20240802
  10. ETOPOSIDE [Suspect]
     Active Substance: ETOPOSIDE
     Dosage: 176 MILLIGRAM 1TOTAL
     Route: 042
     Dates: start: 20240802
  11. ETOPOSIDE [Suspect]
     Active Substance: ETOPOSIDE
     Dosage: 186 MILLIGRAM
     Route: 065
     Dates: start: 20240906
  12. METHOTREXATE [Suspect]
     Active Substance: METHOTREXATE
     Indication: Non-Hodgkin^s lymphoma
     Dosage: 15 MILLIGRAM 1TOTAL
     Route: 037
     Dates: start: 20240902
  13. METHOTREXATE [Suspect]
     Active Substance: METHOTREXATE
     Dosage: 15 MILLIGRAM
     Route: 037
     Dates: start: 20240902
  14. TOCILIZUMAB [Suspect]
     Active Substance: TOCILIZUMAB
     Indication: Non-Hodgkin^s lymphoma
     Dosage: 480 MILLIGRAM 1TOTAL
     Route: 042
     Dates: start: 20240807
  15. TOCILIZUMAB [Suspect]
     Active Substance: TOCILIZUMAB
     Dosage: 460 MILLIGRAM
     Route: 042
     Dates: start: 20240807
  16. IFOSFAMIDE [Suspect]
     Active Substance: IFOSFAMIDE
     Indication: Non-Hodgkin^s lymphoma
     Dosage: 5.6 GRAM
     Route: 042
     Dates: start: 20240802
  17. IFOSFAMIDE [Suspect]
     Active Substance: IFOSFAMIDE
     Dosage: 5.3 GRAM
     Route: 042
     Dates: start: 20240802
  18. IFOSFAMIDE [Suspect]
     Active Substance: IFOSFAMIDE
     Dosage: 5.6 GRAM
     Route: 042
     Dates: start: 20240802
  19. IFOSFAMIDE [Suspect]
     Active Substance: IFOSFAMIDE
     Dosage: 5.6 GRAM
     Route: 065
     Dates: start: 20240906
  20. MESNA [Suspect]
     Active Substance: MESNA
     Indication: Non-Hodgkin^s lymphoma
     Dosage: 1200 MILLIGRAM
     Route: 042
     Dates: start: 20240802
  21. MESNA [Suspect]
     Active Substance: MESNA
     Dosage: 5500 MILLIGRAM 1TOTAL
     Route: 042
     Dates: start: 20240802
  22. MESNA [Suspect]
     Active Substance: MESNA
     Dosage: 6000 MILLIGRAM
     Route: 065
     Dates: start: 20240906
  23. CYTARABINE [Suspect]
     Active Substance: CYTARABINE
     Indication: Non-Hodgkin^s lymphoma
     Dosage: 30 MILLIGRAM 1TOTAL
     Route: 037
     Dates: start: 20240902
  24. CYTARABINE [Suspect]
     Active Substance: CYTARABINE
     Dosage: UNK
     Route: 037
     Dates: start: 20240902
  25. OBINUTUZUMAB [Suspect]
     Active Substance: OBINUTUZUMAB
     Indication: Non-Hodgkin^s lymphoma
     Dosage: 900 MILLIGRAM
     Route: 042
     Dates: start: 20240731
  26. OBINUTUZUMAB [Suspect]
     Active Substance: OBINUTUZUMAB
     Dosage: 900 MILLIGRAM
     Route: 042
     Dates: start: 20240731
  27. LENOGRASTIM [Suspect]
     Active Substance: LENOGRASTIM
     Indication: Non-Hodgkin^s lymphoma
     Dosage: 300 MICROGRAM
     Route: 042
     Dates: start: 20240814
  28. LENOGRASTIM [Suspect]
     Active Substance: LENOGRASTIM
     Dosage: 300 MICROGRAM
     Route: 042
     Dates: start: 20240805
  29. LENOGRASTIM [Suspect]
     Active Substance: LENOGRASTIM
     Dosage: UNK
     Route: 042
     Dates: start: 20240805
  30. LENOGRASTIM [Suspect]
     Active Substance: LENOGRASTIM
     Dosage: 300 MICROGRAM
     Route: 058
     Dates: start: 20240805
  31. COLUMVI [Suspect]
     Active Substance: GLOFITAMAB-GXBM
     Indication: Non-Hodgkin^s lymphoma
     Dosage: 2.5 MILLIGRAM
     Route: 042
     Dates: start: 20240807
  32. COLUMVI [Suspect]
     Active Substance: GLOFITAMAB-GXBM
     Dosage: UNK
     Route: 042
  33. COLUMVI [Suspect]
     Active Substance: GLOFITAMAB-GXBM
     Dosage: UNK
     Route: 042
     Dates: start: 20240807
  34. COLUMVI [Suspect]
     Active Substance: GLOFITAMAB-GXBM
     Dosage: UNK
     Route: 042
  35. COLUMVI [Suspect]
     Active Substance: GLOFITAMAB-GXBM
     Dosage: 30 MILLIGRAM
     Route: 042
     Dates: start: 20240828
  36. MABTHERA [Suspect]
     Active Substance: RITUXIMAB
     Indication: Non-Hodgkin^s lymphoma
     Dosage: 700 MILLIGRAM
     Route: 042
     Dates: start: 20240902
  37. MABTHERA [Suspect]
     Active Substance: RITUXIMAB
     Dosage: UNK
     Route: 042
  38. GLOFITAMAB [Suspect]
     Active Substance: GLOFITAMAB
     Indication: Product used for unknown indication
     Dosage: 2.5 MILLIGRAM
     Route: 042
     Dates: start: 20240807
  39. GLOFITAMAB [Suspect]
     Active Substance: GLOFITAMAB
     Dosage: 30 MILLIGRAM
     Route: 042
     Dates: start: 20240828
  40. ACETAMINOPHEN [Concomitant]
     Active Substance: ACETAMINOPHEN
     Indication: Headache
     Dosage: 750 MILLIGRAM
     Route: 042
     Dates: start: 20240727
  41. ACETAMINOPHEN [Concomitant]
     Active Substance: ACETAMINOPHEN
     Dosage: UNK
     Route: 042
     Dates: start: 20240727
  42. CAFFEINE [Concomitant]
     Active Substance: CAFFEINE
     Indication: Headache
     Dosage: 300 MILLIGRAM, AS NECESSARY
     Route: 048
     Dates: start: 20240727, end: 20240925
  43. AMPHOTERICIN B [Concomitant]
     Active Substance: AMPHOTERICIN B
     Indication: Product used for unknown indication
     Dosage: 100 MILLIGRAM, 3 TIMES A DAY
     Route: 048
     Dates: start: 20240922
  44. CLEMASTINE [Concomitant]
     Active Substance: CLEMASTINE
     Indication: Product used for unknown indication
     Dosage: 1.6 MILLIGRAM, AS NECESSARY
     Route: 042
     Dates: start: 20240828, end: 20240902
  45. PLATELETS [Concomitant]
     Active Substance: HUMAN PLATELET, ALLOGENIC
     Indication: Platelet count decreased
     Dosage: UNK(1 OTHER, PRN)
     Route: 042
     Dates: start: 20240804
  46. HUMAN RED BLOOD CELL [Concomitant]
     Active Substance: HUMAN RED BLOOD CELL
     Indication: Anaemia
     Dosage: UNK(1 OTHER, PRN)
     Route: 042
     Dates: start: 20240805
  47. TRANEXAMIC ACID [Concomitant]
     Active Substance: TRANEXAMIC ACID
     Indication: Epistaxis
     Dosage: UNK(1 OTHER, PRN)
     Route: 045
     Dates: start: 20240812
  48. LEVETIRACETAM [Concomitant]
     Active Substance: LEVETIRACETAM
     Indication: Encephalopathy
     Dosage: 700 MILLIGRAM
     Route: 065
  49. LEVETIRACETAM [Concomitant]
     Active Substance: LEVETIRACETAM
     Dosage: 1500 MILLIGRAM, TWO TIMES A DAY
     Route: 065
     Dates: start: 20240903, end: 20240922
  50. LEVETIRACETAM [Concomitant]
     Active Substance: LEVETIRACETAM
     Dosage: 1500 MILLIGRAM
     Route: 065
     Dates: start: 20240923, end: 20240923
  51. LEVETIRACETAM [Concomitant]
     Active Substance: LEVETIRACETAM
     Dosage: 500 MILLIGRAM, TWO TIMES A DAY
     Route: 065
     Dates: start: 20240805, end: 20240901
  52. LEVETIRACETAM [Concomitant]
     Active Substance: LEVETIRACETAM
     Indication: Encephalopathy
     Dosage: 1500 MILLIGRAM, ONCE A DAY
     Route: 048
     Dates: start: 20240924
  53. MELATONIN [Concomitant]
     Active Substance: MELATONIN
     Indication: Product used for unknown indication
     Dosage: 5 MILLIGRAM, ONCE A DAY
     Route: 048
     Dates: start: 20240806, end: 20240913
  54. ONDANSETRON [Concomitant]
     Active Substance: ONDANSETRON
     Indication: Product used for unknown indication
     Dosage: 8 MILLIGRAM, 3 TIMES A DAY
     Route: 042
     Dates: start: 20240902, end: 20240902
  55. ONDANSETRON [Concomitant]
     Active Substance: ONDANSETRON
     Dosage: 8 MILLIGRAM, 3 TIMES A DAY
     Route: 042
     Dates: start: 20240903, end: 20240906
  56. ONDANSETRON [Concomitant]
     Active Substance: ONDANSETRON
     Dosage: 8 MILLIGRAM, 3 TIMES A DAY
     Route: 042
     Dates: start: 20240907, end: 20240907
  57. ONDANSETRON [Concomitant]
     Active Substance: ONDANSETRON
     Dosage: 8 MILLIGRAM, 3 TIMES A DAY
     Route: 042
     Dates: start: 20240902, end: 20240907
  58. SULFAMETHOXAZOLE\TRIMETHOPRIM [Concomitant]
     Active Substance: SULFAMETHOXAZOLE\TRIMETHOPRIM
     Indication: Product used for unknown indication
     Dosage: 640 MILLIGRAM, EVERY WEEK
     Route: 048
     Dates: start: 20240726, end: 20240913
  59. PANTOPRAZOLE [Concomitant]
     Active Substance: PANTOPRAZOLE
     Indication: Product used for unknown indication
     Dosage: 40 MILLIGRAM, ONCE A DAY
     Route: 042
     Dates: start: 20240908, end: 20240915
  60. PANTOPRAZOLE [Concomitant]
     Active Substance: PANTOPRAZOLE
     Dosage: 40 MILLIGRAM, ONCE A DAY
     Route: 042
     Dates: start: 20240917, end: 20240923
  61. PANTOPRAZOLE [Concomitant]
     Active Substance: PANTOPRAZOLE
     Indication: Product used for unknown indication
     Dosage: 40 MILLIGRAM, ONCE A DAY
     Route: 048
     Dates: start: 20240728, end: 20240907
  62. METHYLPREDNISOLONE [Concomitant]
     Active Substance: METHYLPREDNISOLONE
     Indication: Product used for unknown indication
     Dosage: 120 MILLIGRAM
     Route: 042
     Dates: start: 20240428, end: 20240428
  63. Tranexamsaure eberth [Concomitant]
     Indication: Product used for unknown indication
     Dosage: UNK
     Route: 065
  64. DEXAMETHASONE [Concomitant]
     Active Substance: DEXAMETHASONE
     Indication: Product used for unknown indication
     Dosage: UNK
     Route: 065
     Dates: start: 20241001

REACTIONS (3)
  - Sepsis [Recovered/Resolved]
  - Febrile neutropenia [Not Recovered/Not Resolved]
  - Off label use [Unknown]

NARRATIVE: CASE EVENT DATE: 20240916
